FAERS Safety Report 4266643-3 (Version None)
Quarter: 2004Q1

REPORT INFORMATION
  Report Type: 
  Country: None (occurrence: None)
  Receive Date: 20040108
  Receipt Date: 20040108
  Transmission Date: 20041129
  Serious: Yes (Life-Threatening)
  Sender: FDA-Public Use
  Company Number: None

PATIENT
  Age: 63 Year
  Sex: Female
  Weight: 70.5 kg

DRUGS (2)
  1. CARBOPLATIN [Suspect]
     Indication: OVARIAN CANCER
     Dosage: AUC 5.0 Q 3 WKS X 8 IV
     Route: 042
     Dates: start: 20030529, end: 20031203
  2. PACLITAXEL [Suspect]
     Indication: OVARIAN CANCER
     Dosage: 135MG/M2 IV Q 3 WKS
     Route: 042
     Dates: start: 20030529, end: 20031203

REACTIONS (3)
  - PHLEBOTHROMBOSIS [None]
  - PULMONARY EMBOLISM [None]
  - THROMBOCYTOPENIA [None]
